FAERS Safety Report 9342394 (Version 1)
Quarter: 2013Q2

REPORT INFORMATION
  Report Type: Spontaneous
  Country: SE (occurrence: None)
  Receive Date: 20130607
  Receipt Date: 20130607
  Transmission Date: 20140414
  Serious: Yes (Hospitalization)
  Sender: FDA-Public Use
  Company Number: SE-1198191

PATIENT
  Age: 66 Year
  Sex: Female
  Weight: 63 kg

DRUGS (1)
  1. ISOPTO CARPINE [Suspect]
     Indication: GLAUCOMA
     Route: 047
     Dates: start: 20130417

REACTIONS (4)
  - Vision blurred [None]
  - Dizziness [None]
  - Photopsia [None]
  - Tension headache [None]
